FAERS Safety Report 10196281 (Version 1)
Quarter: 2014Q2

REPORT INFORMATION
  Report Type: Report from Study
  Country: US (occurrence: US)
  Receive Date: 20140527
  Receipt Date: 20140527
  Transmission Date: 20141212
  Serious: Yes (Hospitalization)
  Sender: FDA-Public Use
  Company Number: US-JNJFOC-20140514607

PATIENT
  Age: 15 Year
  Sex: Male
  Weight: 45 kg

DRUGS (6)
  1. REMICADE [Suspect]
     Indication: INFLAMMATORY BOWEL DISEASE
     Route: 042
     Dates: start: 20070716, end: 20110425
  2. HUMIRA [Suspect]
     Indication: INFLAMMATORY BOWEL DISEASE
     Route: 065
  3. 5-ASA [Concomitant]
     Route: 048
  4. ANTIBIOTIC [Concomitant]
     Indication: INFLAMMATORY BOWEL DISEASE
     Route: 065
  5. PEDIASURE [Concomitant]
     Indication: NUTRITIONAL SUPPLEMENTATION
     Route: 065
  6. FERROUS SULPHATE [Concomitant]
     Route: 065

REACTIONS (1)
  - Pneumonia [Recovered/Resolved]
